FAERS Safety Report 19820545 (Version 1)
Quarter: 2021Q3

REPORT INFORMATION
  Report Type: Spontaneous
  Country: US (occurrence: US)
  Receive Date: 20210913
  Receipt Date: 20210913
  Transmission Date: 20211014
  Serious: Yes (Hospitalization, Other)
  Sender: FDA-Public Use
  Company Number: US-GLAXOSMITHKLINE-US2021AMR192498

PATIENT
  Age: 43 Year
  Sex: Female

DRUGS (1)
  1. BENLYSTA [Suspect]
     Active Substance: BELIMUMAB
     Indication: SYSTEMIC LUPUS ERYTHEMATOSUS
     Dosage: 200 MG/ML, Z INJECT 1 ML (200MG) INTO THE SKIN EVERY 7 DAYS
     Route: 058

REACTIONS (3)
  - Pneumonia [Unknown]
  - Carditis [Unknown]
  - Dysphonia [Unknown]

NARRATIVE: CASE EVENT DATE: 20210627
